FAERS Safety Report 5245730-7 (Version None)
Quarter: 2007Q1

REPORT INFORMATION
  Report Type: 
  Country: None (occurrence: None)
  Receive Date: 20070223
  Receipt Date: 20070213
  Transmission Date: 20070707
  Serious: Yes (Other)
  Sender: FDA-Public Use
  Company Number: JP-PFIZER INC-2007012658

PATIENT
  Age: 53 Year
  Sex: Female

DRUGS (2)
  1. DOXORUBICIN HYDROCHLORIDE [Suspect]
     Dates: start: 20030901
  2. DOCETAXEL [Suspect]
     Indication: BREAST CANCER

REACTIONS (1)
  - SCLERODERMA [None]
